FAERS Safety Report 6305984-2 (Version None)
Quarter: 2009Q3

REPORT INFORMATION
  Report Type: 
  Country: None (occurrence: None)
  Receive Date: 20090812
  Receipt Date: 20090729
  Transmission Date: 20100115
  Serious: Yes (Life-Threatening, Other)
  Sender: FDA-Public Use
  Company Number: FR-B.I. PHARMACEUTICALS,INC./RIDGEFIELD-2009-DE-05230BY

PATIENT
  Age: 76 Year
  Sex: Female

DRUGS (10)
  1. PRITOR [Suspect]
     Route: 048
  2. GLUCOPHAGE [Suspect]
     Dosage: 3000 MG
     Route: 048
     Dates: end: 20090601
  3. FUROSEMIDE [Suspect]
  4. ADVIL [Suspect]
     Route: 048
  5. GLUCOR [Concomitant]
  6. VASTAREL [Concomitant]
  7. AMAREL [Concomitant]
  8. MOGADON [Concomitant]
  9. POLERY [Concomitant]
  10. CHELIDONIUM MAJUS [Concomitant]

REACTIONS (5)
  - DIARRHOEA [None]
  - GENERAL PHYSICAL HEALTH DETERIORATION [None]
  - LACTIC ACIDOSIS [None]
  - RENAL FAILURE ACUTE [None]
  - VOMITING [None]
